FAERS Safety Report 7796715-8 (Version None)
Quarter: 2011Q4

REPORT INFORMATION
  Report Type: 
  Country: None (occurrence: None)
  Receive Date: 20111003
  Receipt Date: 20110919
  Transmission Date: 20120403
  Serious: Yes (Other)
  Sender: FDA-Public Use
  Company Number: MIN-00757

PATIENT
  Age: 16 Year

DRUGS (1)
  1. MINOCYCLINE HCL [Suspect]
     Indication: ACNE

REACTIONS (4)
  - MALAISE [None]
  - ARTHROPATHY [None]
  - CHRONIC HEPATITIS [None]
  - FIBROSIS [None]
